FAERS Safety Report 12235375 (Version 1)
Quarter: 2016Q2

REPORT INFORMATION
  Report Type: Spontaneous
  Country: HU (occurrence: HU)
  Receive Date: 20160404
  Receipt Date: 20160404
  Transmission Date: 20160815
  Serious: Yes (Hospitalization)
  Sender: FDA-Public Use
  Company Number: HU-ELI_LILLY_AND_COMPANY-HU201603009617

PATIENT
  Age: 75 Year
  Sex: Female

DRUGS (1)
  1. FORSTEO [Suspect]
     Active Substance: TERIPARATIDE
     Indication: PRODUCT USED FOR UNKNOWN INDICATION
     Dosage: UNK UNK, UNKNOWN
     Route: 065
     Dates: start: 20160229

REACTIONS (4)
  - Decreased appetite [Unknown]
  - Nausea [Unknown]
  - Subileus [Unknown]
  - Weight decreased [Unknown]

NARRATIVE: CASE EVENT DATE: 20160307
